FAERS Safety Report 18901681 (Version 7)
Quarter: 2024Q2

REPORT INFORMATION
  Report Type: Spontaneous
  Country: ES (occurrence: ES)
  Receive Date: 20210217
  Receipt Date: 20240429
  Transmission Date: 20240716
  Serious: Yes (Death, Life-Threatening, Hospitalization, Other)
  Sender: FDA-Public Use
  Company Number: ES-AUROBINDO-AUR-APL-2021-006638

PATIENT
  Age: 25 Year
  Sex: Male

DRUGS (20)
  1. CEFTAZIDIME [Suspect]
     Active Substance: CEFTAZIDIME
     Indication: Pneumonia
     Dosage: 1 GRAM, 3 TIMES A DAY (EVERY 8 HOURS)
     Route: 065
  2. MEROPENEM [Suspect]
     Active Substance: MEROPENEM
     Indication: Pneumonia
     Dosage: 500 MILLIGRAM, ONCE A DAY
     Route: 065
  3. TERBINAFINE [Suspect]
     Active Substance: TERBINAFINE
     Indication: Product used for unknown indication
     Dosage: UNK
     Route: 065
  4. VORICONAZOLE [Suspect]
     Active Substance: VORICONAZOLE
     Indication: Product used for unknown indication
     Dosage: 400 MILLIGRAM, TWO TIMES A DAY,  ON FIRST DAY, FOLLOWED BY 300 MG/12
     Route: 065
  5. VORICONAZOLE [Suspect]
     Active Substance: VORICONAZOLE
     Dosage: 300 MILLIGRAM, TWO TIMES A DAY (400 MG EVERY 12 HOURS ON FIRST DAY, FOLLOWED BY 300 MG/12)
     Route: 065
  6. AMIKACIN [Suspect]
     Active Substance: AMIKACIN
     Indication: Pneumonia
     Dosage: UNK
     Route: 065
  7. AMBISOME [Suspect]
     Active Substance: AMPHOTERICIN B
     Indication: Fungal infection
     Dosage: 270 MILLIGRAM, ONCE A DAY
     Route: 065
  8. BASILIXIMAB [Suspect]
     Active Substance: BASILIXIMAB
     Indication: Prophylaxis against transplant rejection
     Dosage: 20 MILLIGRAM, BEFORE THE SURGERY AND AT DAY +4
     Route: 065
  9. GANCICLOVIR [Suspect]
     Active Substance: GANCICLOVIR
     Indication: Antiviral prophylaxis
     Dosage: UNK
     Route: 065
  10. METHYLPREDNISOLONE [Suspect]
     Active Substance: METHYLPREDNISOLONE
     Indication: Prophylaxis against transplant rejection
     Dosage: 125 MILLIGRAM, 3 TIMES A DAY(WITH TAPERING FROM 60 MG/DAY TO 10 MG/DAY)
     Route: 065
  11. MYCOPHENOLATE MOFETIL [Suspect]
     Active Substance: MYCOPHENOLATE MOFETIL
     Indication: Prophylaxis against transplant rejection
     Dosage: 1000 MILLIGRAM, TWO TIMES A DAY
     Route: 065
  12. PREDNISONE [Suspect]
     Active Substance: PREDNISONE
     Indication: Prophylaxis against transplant rejection
     Dosage: 15 MILLIGRAM, TWO TIMES A DAY
     Route: 065
  13. VANCOMYCIN [Suspect]
     Active Substance: VANCOMYCIN
     Indication: Pneumonia
     Dosage: 1 GRAM, ONCE A DAY
     Route: 065
  14. ACENOCOUMAROL [Concomitant]
     Active Substance: ACENOCOUMAROL
     Indication: Syncope
     Dosage: UNK
     Route: 065
  15. AMIODARONE [Concomitant]
     Active Substance: AMIODARONE
     Indication: Syncope
     Dosage: UNK
     Route: 065
  16. ANIDULAFUNGIN [Concomitant]
     Active Substance: ANIDULAFUNGIN
     Indication: Antifungal prophylaxis
     Dosage: 200 MILLIGRAM,ON THE FIRST DAY
     Route: 065
  17. ANIDULAFUNGIN [Concomitant]
     Active Substance: ANIDULAFUNGIN
     Dosage: 100 MILLIGRAM, ONCE A DAY
     Route: 065
  18. CEFAZOLIN [Concomitant]
     Active Substance: CEFAZOLIN
     Indication: Antibiotic prophylaxis
     Dosage: 2 MILLIGRAM, 3 TIMES A DAY
     Route: 065
  19. COTRIMOXAZOLE [Concomitant]
     Active Substance: SULFAMETHOXAZOLE\TRIMETHOPRIM
     Indication: Antibiotic prophylaxis
     Dosage: UNK
     Route: 065
  20. TACROLIMUS [Concomitant]
     Active Substance: TACROLIMUS
     Indication: Product used for unknown indication
     Dosage: UNK
     Route: 065

REACTIONS (13)
  - Scedosporium infection [Fatal]
  - Drug ineffective [Fatal]
  - Drug resistance [Not Recovered/Not Resolved]
  - Pseudomonal bacteraemia [Unknown]
  - Epilepsy [Unknown]
  - Hemiparesis [Unknown]
  - Septic shock [Unknown]
  - Pneumonia bacterial [Unknown]
  - Pancytopenia [Unknown]
  - Influenza [Unknown]
  - Altered state of consciousness [Unknown]
  - Fungaemia [Unknown]
  - Candida infection [Unknown]
